FAERS Safety Report 24571947 (Version 1)
Quarter: 2024Q4

REPORT INFORMATION
  Report Type: Spontaneous
  Country: US (occurrence: US)
  Receive Date: 20241101
  Receipt Date: 20241101
  Transmission Date: 20250115
  Serious: Yes (Other)
  Sender: AMGEN
  Company Number: US-AMGEN-USASP2024213295

PATIENT
  Sex: Female

DRUGS (1)
  1. PROLIA [Suspect]
     Active Substance: DENOSUMAB
     Indication: Osteoporosis postmenopausal
     Dosage: 30 MILLIGRAM, Q6MO
     Route: 058

REACTIONS (4)
  - End stage renal disease [Unknown]
  - Chronic kidney disease-mineral and bone disorder [Unknown]
  - Drug effective for unapproved indication [Unknown]
  - Off label use [Unknown]
